FAERS Safety Report 10926339 (Version 3)
Quarter: 2016Q3

REPORT INFORMATION
  Report Type: Spontaneous
  Country: US (occurrence: US)
  Receive Date: 20150318
  Receipt Date: 20160913
  Transmission Date: 20161109
  Serious: Yes (Other)
  Sender: FDA-Public Use
  Company Number: US-PFIZER INC-2015093193

PATIENT
  Age: 69 Year
  Sex: Female
  Weight: 67 kg

DRUGS (14)
  1. VALIUM [Concomitant]
     Active Substance: DIAZEPAM
     Indication: SLEEP DISORDER
     Dosage: UNK
  2. SYNTHROID [Concomitant]
     Active Substance: LEVOTHYROXINE SODIUM
     Indication: THYROID DISORDER
     Dosage: 0.125 MG, UNK
  3. LITHIUM. [Concomitant]
     Active Substance: LITHIUM
     Indication: EUPHORIC MOOD
     Dosage: 300 MG, 1X/DAY
     Dates: start: 1995
  4. ADVAIR DISKUS [Concomitant]
     Active Substance: FLUTICASONE PROPIONATE\SALMETEROL XINAFOATE
     Indication: ASTHMA
     Dosage: FLUTICASONE PROPIONATE 250/SALMETEROL XINAFOATE 50
     Route: 055
  5. CLONAZEPAM. [Concomitant]
     Active Substance: CLONAZEPAM
     Dosage: UNK
  6. TRILEPTAL [Concomitant]
     Active Substance: OXCARBAZEPINE
     Dosage: 900 MG, DAILY
  7. THORAZINE [Concomitant]
     Active Substance: CHLORPROMAZINE
     Dosage: 12.5 MG, 1X/DAY
  8. LAMICTAL [Concomitant]
     Active Substance: LAMOTRIGINE
     Dosage: 25 MG, 1X/DAY
  9. LAMICTAL [Concomitant]
     Active Substance: LAMOTRIGINE
     Dosage: 100 MG, UNK
  10. PERCOCET [Concomitant]
     Active Substance: ACETAMINOPHEN\OXYCODONE HYDROCHLORIDE
     Indication: ARTHRITIS
     Dosage: 325, 4X/DAY
  11. PARNATE [Concomitant]
     Active Substance: TRANYLCYPROMINE SULFATE
     Dosage: UNK
  12. FLONASE [Concomitant]
     Active Substance: FLUTICASONE PROPIONATE
     Indication: ASTHMA
     Dosage: UNK
  13. NICOTROL [Suspect]
     Active Substance: NICOTINE
     Indication: SMOKING CESSATION THERAPY
     Dosage: 0-5 SPRAYS AN HOUR
     Route: 045
     Dates: start: 2009
  14. PERCOCET [Concomitant]
     Active Substance: ACETAMINOPHEN\OXYCODONE HYDROCHLORIDE
     Indication: BACK PAIN

REACTIONS (16)
  - Drug withdrawal syndrome [Unknown]
  - Mania [Unknown]
  - Asthenia [Recovering/Resolving]
  - Rotator cuff syndrome [Unknown]
  - Disease recurrence [Unknown]
  - Impulsive behaviour [Unknown]
  - Bronchitis [Unknown]
  - Disease recurrence [Unknown]
  - Judgement impaired [Unknown]
  - Limb injury [Unknown]
  - Agitation [Unknown]
  - Gallbladder enlargement [Unknown]
  - Panic attack [Not Recovered/Not Resolved]
  - Insomnia [Unknown]
  - Pain [Unknown]
  - Weight decreased [Unknown]

NARRATIVE: CASE EVENT DATE: 2015
